FAERS Safety Report 4390048-8 (Version None)
Quarter: 2004Q2

REPORT INFORMATION
  Report Type: 
  Country: None (occurrence: None)
  Receive Date: 20040630
  Receipt Date: 20040616
  Transmission Date: 20050107
  Serious: Yes (Hospitalization, Disabling)
  Sender: FDA-Public Use
  Company Number: CA-JNJFOC-20040605443

PATIENT
  Age: 63 Year
  Sex: Female
  Weight: 65.8 kg

DRUGS (9)
  1. REMICADE [Suspect]
     Indication: RHEUMATOID ARTHRITIS
     Dosage: 300 MG, 1 IN 8 WEEK, INTRAVENOUS
     Dates: start: 20010419
  2. REMICADE [Suspect]
     Indication: RHEUMATOID ARTHRITIS
     Dosage: 300 MG, 1 IN 8 WEEK, INTRAVENOUS
     Dates: start: 20040421
  3. ATACAND (TABLETS) CANDESARTAN CILEXETIL [Concomitant]
  4. ZOCOR (TABLETS) SIMVASTATIN) [Concomitant]
  5. METHOTREXATE [Concomitant]
  6. VIOXX [Concomitant]
  7. CA (CALCIUM) [Concomitant]
  8. ACTONEL [Concomitant]
  9. ACETYLSALICYLIC ACID SRT [Concomitant]

REACTIONS (3)
  - JOINT ARTHROPLASTY [None]
  - JOINT DISLOCATION [None]
  - SURGICAL PROCEDURE REPEATED [None]
